FAERS Safety Report 7670088-3 (Version None)
Quarter: 2011Q3

REPORT INFORMATION
  Report Type: 
  Country: None (occurrence: None)
  Receive Date: 20110808
  Receipt Date: 20110805
  Transmission Date: 20111222
  Serious: No
  Sender: FDA-Public Use
  Company Number: US-PFIZER INC-2011179939

PATIENT
  Sex: Female
  Weight: 68 kg

DRUGS (4)
  1. ADVIL LIQUI-GELS [Suspect]
     Indication: HEADACHE
     Dosage: 200 MG, 2X/DAY
     Route: 048
     Dates: start: 20100101, end: 20110804
  2. METOPROLOL [Concomitant]
     Indication: HYPERTENSION
     Dosage: UNK
  3. INSULIN [Concomitant]
     Indication: DIABETES MELLITUS
     Dosage: UNK
  4. ADVIL LIQUI-GELS [Suspect]
     Indication: ABDOMINAL PAIN UPPER

REACTIONS (2)
  - RASH [None]
  - MUSCULOSKELETAL STIFFNESS [None]
